FAERS Safety Report 9376890 (Version 3)
Quarter: 2013Q4

REPORT INFORMATION
  Report Type: Spontaneous
  Country: US (occurrence: US)
  Receive Date: 20130701
  Receipt Date: 20131024
  Transmission Date: 20140711
  Serious: Yes (Hospitalization)
  Sender: FDA-Public Use
  Company Number: US-JNJFOC-20130612809

PATIENT
  Age: 32 Year
  Sex: Male
  Weight: 108.41 kg

DRUGS (7)
  1. REMICADE [Suspect]
     Indication: PSORIASIS
     Route: 042
     Dates: start: 20121220
  2. REMICADE [Suspect]
     Indication: PSORIASIS
     Dosage: 5TH DOSE
     Route: 042
     Dates: start: 20130614, end: 20130614
  3. REMICADE [Suspect]
     Indication: PSORIASIS
     Route: 042
     Dates: start: 201301
  4. TOPAMAX [Concomitant]
     Route: 065
  5. ENALAPRIL [Concomitant]
     Indication: BLOOD PRESSURE
     Route: 065
  6. LORATADINE [Concomitant]
     Indication: PREMEDICATION
     Route: 048
     Dates: start: 20130614
  7. TYLENOL [Concomitant]
     Indication: PREMEDICATION
     Route: 048
     Dates: start: 20130614

REACTIONS (10)
  - Anxiety [Recovered/Resolved]
  - Dyspnoea [Recovered/Resolved]
  - Hyperhidrosis [Recovered/Resolved]
  - Chest pain [Recovered/Resolved]
  - Pallor [Recovered/Resolved]
  - Erythema [Recovered/Resolved]
  - Infusion related reaction [Recovering/Resolving]
  - Back pain [Recovered/Resolved]
  - Pulse abnormal [Recovering/Resolving]
  - Tachycardia [Recovered/Resolved]
